FAERS Safety Report 8951146 (Version 1)
Quarter: 2012Q4

REPORT INFORMATION
  Report Type: 
  Country: US (occurrence: US)
  Receive Date: 20121207
  Receipt Date: 20121207
  Transmission Date: 20130627
  Serious: Yes (Death)
  Sender: FDA-Public Use
  Company Number: PHEH2012US023786

PATIENT
  Sex: Female
  Weight: 48.73 kg

DRUGS (4)
  1. AFINITOR [Suspect]
     Dosage: UNK
     Dates: start: 20121002, end: 20121015
  2. ARIMIDEX [Concomitant]
     Dosage: UNK
     Dates: start: 20121002, end: 20121015
  3. ABRAXANE [Concomitant]
     Dosage: UNK
     Dates: start: 20120724, end: 20121118
  4. LASIX [Concomitant]
     Indication: POLYURIA
     Dosage: 20 mg, UNK

REACTIONS (6)
  - Death [Fatal]
  - Anaemia [Unknown]
  - Dehydration [Unknown]
  - Oedema peripheral [Unknown]
  - Neutropenia [Unknown]
  - Pain [Unknown]
